FAERS Safety Report 12470469 (Version 1)
Quarter: 2016Q2

REPORT INFORMATION
  Report Type: Spontaneous
  Country: US (occurrence: US)
  Receive Date: 20160616
  Receipt Date: 20160616
  Transmission Date: 20160815
  Serious: Yes (Other)
  Sender: FDA-Public Use
  Company Number: US-PFIZER INC-2016293600

PATIENT
  Age: 80 Year
  Sex: Female
  Weight: 80.73 kg

DRUGS (2)
  1. IBRANCE [Suspect]
     Active Substance: PALBOCICLIB
     Dosage: DOSE DECREASED
     Route: 048
  2. IBRANCE [Suspect]
     Active Substance: PALBOCICLIB
     Indication: BREAST CANCER
     Dosage: 75 MG FROM DAY 1-DAY 21 FOR EVERY 28 DAYS
     Route: 048

REACTIONS (3)
  - Red blood cell count abnormal [Unknown]
  - Disease progression [Unknown]
  - Breast cancer [Unknown]
